FAERS Safety Report 17602272 (Version 1)
Quarter: 2020Q1

REPORT INFORMATION
  Report Type: Report from Study
  Country: KR (occurrence: KR)
  Receive Date: 20200330
  Receipt Date: 20200330
  Transmission Date: 20200409
  Serious: Yes (Hospitalization, Other)
  Sender: FDA-Public Use
  Company Number: KR-TAKEDA-2020TUS012472

PATIENT
  Age: 80 Year
  Sex: Female

DRUGS (11)
  1. PONATINIB [Suspect]
     Active Substance: PONATINIB
     Dosage: 45 MILLIGRAM, QD
     Route: 048
     Dates: start: 20191001
  2. CRAVIT [Concomitant]
     Active Substance: LEVOFLOXACIN
     Indication: INFECTION PROPHYLAXIS
     Dosage: 500 MILLIGRAM, QD
     Route: 048
     Dates: start: 20190923, end: 20191006
  3. PENIRAMIN [Concomitant]
     Indication: PROPHYLAXIS
     Dosage: 4 MILLIGRAM, QD
     Route: 042
     Dates: start: 20190923, end: 20190923
  4. ACLOVA                             /00587301/ [Concomitant]
     Indication: INFECTION PROPHYLAXIS
     Dosage: 800 MILLIGRAM, BID
     Route: 048
     Dates: start: 20190909, end: 20191024
  5. LYRICA [Concomitant]
     Active Substance: PREGABALIN
     Indication: NEUROPATHY PERIPHERAL
     Dosage: 150 MILLIGRAM, BID
     Route: 048
     Dates: start: 20190909, end: 20191006
  6. LYRICA [Concomitant]
     Active Substance: PREGABALIN
     Indication: PROPHYLAXIS
  7. FLUNAZOLE [Concomitant]
     Active Substance: FLUCONAZOLE
     Indication: INFECTION PROPHYLAXIS
     Dosage: 200 MILLIGRAM, BID
     Route: 048
     Dates: start: 20190923
  8. PONATINIB [Suspect]
     Active Substance: PONATINIB
     Indication: ACUTE LYMPHOCYTIC LEUKAEMIA
     Dosage: 45 MILLIGRAM, QD
     Route: 048
     Dates: start: 20190909, end: 20190922
  9. PENIRAMIN [Concomitant]
     Indication: INFECTION PROPHYLAXIS
     Dosage: 2 GRAM, BID
     Route: 042
     Dates: start: 20191014, end: 20191024
  10. SEPTRIN [Concomitant]
     Active Substance: SULFAMETHOXAZOLE\TRIMETHOPRIM
     Indication: INFECTION PROPHYLAXIS
     Dosage: UNK UNK, BID
     Route: 048
     Dates: start: 20190909, end: 20191024
  11. TANTUM                             /00052302/ [Concomitant]
     Indication: INFECTION PROPHYLAXIS
     Dosage: 100 MILLILITER, TID
     Route: 048
     Dates: start: 20190909, end: 20191024

REACTIONS (2)
  - Constipation [Not Recovered/Not Resolved]
  - Metastases to meninges [Not Recovered/Not Resolved]

NARRATIVE: CASE EVENT DATE: 20191007
